FAERS Safety Report 18551989 (Version 1)
Quarter: 2020Q4

REPORT INFORMATION
  Report Type: Other
  Country: SG (occurrence: SG)
  Receive Date: 20201126
  Receipt Date: 20201126
  Transmission Date: 20210114
  Serious: Yes (Hospitalization, Other)
  Sender: FDA-Public Use
  Company Number: SG-ROCHE-2715566

PATIENT
  Age: 62 Year
  Sex: Female

DRUGS (1)
  1. ALECENSA [Suspect]
     Active Substance: ALECTINIB HYDROCHLORIDE
     Indication: NON-SMALL CELL LUNG CANCER
     Dosage: 8 CAPSULES IN THE MORNING AND 8 CAPSULES IN THE NIGHT
     Route: 048

REACTIONS (9)
  - Immunodeficiency [Unknown]
  - Intentional product use issue [Unknown]
  - Peripheral swelling [Unknown]
  - Colitis ulcerative [Unknown]
  - Fatigue [Unknown]
  - Defaecation disorder [Unknown]
  - Dyspnoea [Unknown]
  - Off label use [Unknown]
  - Overdose [Unknown]
